FAERS Safety Report 25361273 (Version 2)
Quarter: 2025Q2

REPORT INFORMATION
  Report Type: Report from Study
  Country: CA (occurrence: CA)
  Receive Date: 20250527
  Receipt Date: 20250628
  Transmission Date: 20250716
  Serious: Yes (Hospitalization)
  Sender: JOHNSON AND JOHNSON
  Company Number: CA-JNJFOC-20250531188

PATIENT
  Age: 30 Year
  Sex: Male
  Weight: 70.1 kg

DRUGS (2)
  1. REMICADE [Suspect]
     Active Substance: INFLIXIMAB
     Indication: Crohn^s disease
     Dosage: EXPIRY DATE: MA-2027, 2027
     Route: 041
     Dates: start: 20110922
  2. VANCOMYCIN [Suspect]
     Active Substance: VANCOMYCIN
     Indication: Bursitis infective
     Route: 065

REACTIONS (2)
  - Bursitis infective [Recovered/Resolved]
  - Hypersensitivity [Recovered/Resolved]

NARRATIVE: CASE EVENT DATE: 20250522
